FAERS Safety Report 21194869 (Version 1)
Quarter: 2022Q3

REPORT INFORMATION
  Report Type: Spontaneous
  Country: GB (occurrence: GB)
  Receive Date: 20220810
  Receipt Date: 20220810
  Transmission Date: 20221026
  Serious: Yes (Disabling, Other)
  Sender: FDA-Public Use
  Company Number: GB-MHRA-MED-202207262136488240-VCYPN

PATIENT
  Age: 23 Year
  Sex: Female

DRUGS (1)
  1. SERTRALINE [Suspect]
     Active Substance: SERTRALINE HYDROCHLORIDE
     Indication: Depression
     Dosage: 50MG ONCE A DAY
     Route: 065
     Dates: end: 2019

REACTIONS (2)
  - Loss of libido [Not Recovered/Not Resolved]
  - Genito-pelvic pain/penetration disorder [Not Recovered/Not Resolved]
